FAERS Safety Report 15196239 (Version 1)
Quarter: 2018Q3

REPORT INFORMATION
  Report Type: Spontaneous
  Country: AU (occurrence: AU)
  Receive Date: 20180725
  Receipt Date: 20180725
  Transmission Date: 20181010
  Serious: Yes (Other)
  Sender: FDA-Public Use
  Company Number: PHHY2018AU050377

PATIENT
  Age: 74 Year
  Sex: Male

DRUGS (8)
  1. CEFAZOLIN [Suspect]
     Active Substance: CEFAZOLIN
     Indication: SKIN TEST
     Dosage: 1 MG, UNK (PERFORMED IN TRIPLICATE 20,200,200 UG/ML)
     Route: 065
  2. BENZYLPENICILLIN [Suspect]
     Active Substance: PENICILLIN G
     Indication: SKIN TEST
     Route: 065
  3. CEFAZOLIN [Suspect]
     Active Substance: CEFAZOLIN
     Indication: IMMUNOLOGY TEST
  4. PENICILLIN VK [Concomitant]
     Active Substance: PENICILLIN V POTASSIUM
     Indication: PRODUCT USED FOR UNKNOWN INDICATION
     Route: 065
  5. MEROPENEM. [Suspect]
     Active Substance: MEROPENEM
     Indication: SKIN TEST
     Dosage: 2.5 MG/ML, UNK
     Route: 065
  6. BENZYLPENICILLIN [Suspect]
     Active Substance: PENICILLIN G
     Indication: IMMUNOLOGY TEST
  7. FLUCLOXACILLIN [Concomitant]
     Active Substance: FLUCLOXACILLIN
     Indication: PRODUCT USED FOR UNKNOWN INDICATION
     Route: 065
  8. MEROPENEM. [Suspect]
     Active Substance: MEROPENEM
     Indication: IMMUNOLOGY TEST

REACTIONS (1)
  - Drug reaction with eosinophilia and systemic symptoms [Unknown]
